FAERS Safety Report 18393361 (Version 2)
Quarter: 2021Q1

REPORT INFORMATION
  Report Type: Spontaneous
  Country: DE (occurrence: DE)
  Receive Date: 20201016
  Receipt Date: 20210104
  Transmission Date: 20210419
  Serious: Yes (Other)
  Sender: FDA-Public Use
  Company Number: DE-BRISTOL-MYERS SQUIBB COMPANY-BMS-2020-084481

PATIENT
  Age: 66 Year
  Sex: Female
  Weight: 73 kg

DRUGS (5)
  1. BISOPROLOL [Concomitant]
     Active Substance: BISOPROLOL
     Indication: ARRHYTHMIA
     Dosage: 5 MG IN THE MORNING, 2.5 MG IN THE EVENING
     Route: 065
  2. ELIQUIS [Suspect]
     Active Substance: APIXABAN
     Dosage: 5 MILLIGRAM, BID
     Route: 048
     Dates: start: 20201012
  3. ELIQUIS [Suspect]
     Active Substance: APIXABAN
     Indication: CEREBROVASCULAR ACCIDENT PROPHYLAXIS
     Dosage: 5 MILLIGRAM, BID
     Route: 048
     Dates: start: 2015, end: 20201010
  4. KOMBOGLYZE [Concomitant]
     Active Substance: METFORMIN HYDROCHLORIDE\SAXAGLIPTIN
     Indication: DIABETES MELLITUS
     Dosage: 2.5/1000 MG TWICE DAILY
     Route: 065
  5. L?THYROX [Concomitant]
     Active Substance: LEVOTHYROXINE SODIUM
     Indication: THYROID DISORDER
     Dosage: 50 MICROGRAM, QD
     Route: 065

REACTIONS (1)
  - Breast cancer [Unknown]

NARRATIVE: CASE EVENT DATE: 20201012
